FAERS Safety Report 6785101-5 (Version None)
Quarter: 2010Q2

REPORT INFORMATION
  Report Type: 
  Country: None (occurrence: None)
  Receive Date: 20100618
  Receipt Date: 20100608
  Transmission Date: 20101027
  Serious: Yes (Disabling, Other)
  Sender: FDA-Public Use
  Company Number: 013484

PATIENT
  Age: 65 Year
  Sex: Male
  Weight: 90.4 kg

DRUGS (9)
  1. ROTIGOTINE (ROTIGOTINE) [Suspect]
     Indication: PARKINSON'S DISEASE
     Dosage: (4 MG TRANSDERMAL)
     Route: 062
     Dates: start: 20090801
  2. AMITRIPTYLINE HYDROCHLORIDE [Suspect]
     Indication: DEPRESSION
     Dosage: (25 MG)
  3. AMITRIPTYLINE HYDROCHLORIDE [Suspect]
     Indication: PAIN
     Dosage: (25 MG)
  4. AMITRIPTYLINE HYDROCHLORIDE [Suspect]
     Indication: SLEEP DISORDER
     Dosage: (25 MG)
  5. ATORVASTATIN CALCIUM [Suspect]
  6. BUPRENORPHINE (BUPRENORPHINE) [Suspect]
     Indication: BACK PAIN
     Dosage: (25 UG Q1H)
     Dates: start: 20090501
  7. LANSOPRAZOLE [Suspect]
     Indication: DYSPEPSIA
     Dosage: (INCREASED DOSE)
  8. SELEGILINE HCL [Suspect]
     Indication: PARKINSON'S DISEASE
     Dosage: (0.05 MG ORAL)
     Route: 048
     Dates: start: 20100120, end: 20100123
  9. SINEMET CR [Suspect]
     Indication: PARKINSON'S DISEASE
     Dosage: (1 DF 9X/DAY)
     Dates: start: 20090801

REACTIONS (5)
  - DIPLOPIA [None]
  - DRUG INTERACTION [None]
  - DYSARTHRIA [None]
  - MALAISE [None]
  - NAUSEA [None]
